FAERS Safety Report 8999789 (Version 1)
Quarter: 2013Q1

REPORT INFORMATION
  Report Type: Spontaneous
  Country: CA (occurrence: CA)
  Receive Date: 20130102
  Receipt Date: 20130102
  Transmission Date: 20140127
  Serious: Yes (Other)
  Sender: FDA-Public Use
  Company Number: CA-JNJFOC-20121213319

PATIENT
  Age: 58 Year
  Sex: Female
  Weight: 77.11 kg

DRUGS (2)
  1. NICORETTE [Suspect]
     Indication: EX-TOBACCO USER
     Route: 048
     Dates: start: 2011
  2. NICORETTE [Suspect]
     Indication: EX-TOBACCO USER
     Dosage: 1/2 OF A GUM
     Route: 048
     Dates: start: 2011

REACTIONS (8)
  - Nicotine dependence [Unknown]
  - Incorrect drug administration duration [Unknown]
  - Weight increased [Unknown]
  - Oropharyngeal pain [Unknown]
  - Hypogeusia [Unknown]
  - Parosmia [Unknown]
  - Hyperphagia [Unknown]
  - Wrong technique in drug usage process [Unknown]
